FAERS Safety Report 5734132-2 (Version None)
Quarter: 2008Q2

REPORT INFORMATION
  Report Type: 
  Country: None (occurrence: None)
  Receive Date: 20080509
  Receipt Date: 20080429
  Transmission Date: 20081010
  Serious: Yes (Other)
  Sender: FDA-Public Use
  Company Number: US-PFIZER INC-2008037597

PATIENT
  Sex: Female

DRUGS (7)
  1. LYRICA [Suspect]
     Indication: NEUROPATHY PERIPHERAL
     Dates: start: 20070101, end: 20080427
  2. METOPROLOL TARTRATE [Concomitant]
  3. TRICOR [Concomitant]
  4. WELCHOL [Concomitant]
  5. ZETIA [Concomitant]
  6. DIGOXIN [Concomitant]
  7. ALAVERT [Concomitant]

REACTIONS (2)
  - CORNEAL OEDEMA [None]
  - VISUAL DISTURBANCE [None]
